FAERS Safety Report 4736780-5 (Version None)
Quarter: 2005Q3

REPORT INFORMATION
  Report Type: 
  Country: None (occurrence: None)
  Receive Date: 20050803
  Receipt Date: 20050720
  Transmission Date: 20060218
  Serious: Yes (Death, Hospitalization)
  Sender: FDA-Public Use
  Company Number: 2005-01453

PATIENT
  Age: 59 Year
  Sex: Male
  Weight: 74.6 kg

DRUGS (12)
  1. VELCADE [Suspect]
     Indication: MULTIPLE MYELOMA
     Dosage: 2.60 MG, INTRAVENOUS
     Route: 042
     Dates: start: 20050211, end: 20050211
  2. ACETAMINOPHEN [Concomitant]
  3. CAMPHOR/EUCALYPTUS/MENTHOL/METHYL SALICYLATE (CAMPHOR, MENTHOL, EUCALY [Concomitant]
  4. DOCUSATE (DOCUSATE) [Concomitant]
  5. METOPROLOL TARTRATE [Concomitant]
  6. NEPHRO-VITE RX (ASCORBIC ACID, VITAMIN B NOS, FOLIC ACID) [Concomitant]
  7. OXYCODONE (OXYCODONE) [Concomitant]
  8. SENNA (SENNA) [Concomitant]
  9. SEVELAMER (SEVELAMER) [Concomitant]
  10. TRAZODONE (TRAZODONE) [Concomitant]
  11. HYDROXYZINE PAMOATE [Concomitant]
  12. OMEPRAZOLE [Concomitant]

REACTIONS (19)
  - ABDOMINAL PAIN [None]
  - ASPARTATE AMINOTRANSFERASE INCREASED [None]
  - BLOOD ALBUMIN DECREASED [None]
  - BLOOD ALKALINE PHOSPHATASE INCREASED [None]
  - DISEASE PROGRESSION [None]
  - FALL [None]
  - HAEMATOCRIT DECREASED [None]
  - HAEMODIALYSIS [None]
  - HAEMOGLOBIN DECREASED [None]
  - HYPERAMMONAEMIA [None]
  - HYPERCALCAEMIA [None]
  - HYPOTENSION [None]
  - MALIGNANT NEOPLASM PROGRESSION [None]
  - MENTAL STATUS CHANGES [None]
  - MULTIPLE MYELOMA [None]
  - PLATELET COUNT DECREASED [None]
  - PNEUMONIA [None]
  - PROTEIN TOTAL INCREASED [None]
  - RENAL FAILURE CHRONIC [None]
